FAERS Safety Report 6284291-0 (Version None)
Quarter: 2009Q3

REPORT INFORMATION
  Report Type: 
  Country: None (occurrence: None)
  Receive Date: 20090727
  Receipt Date: 20090721
  Transmission Date: 20100115
  Serious: Yes (Life-Threatening)
  Sender: FDA-Public Use
  Company Number: PHHY2009FR30284

PATIENT
  Sex: Female

DRUGS (1)
  1. METHERGINE [Suspect]
     Indication: METRORRHAGIA
     Dosage: 30 DRP, QD
     Route: 048
     Dates: start: 20090315, end: 20090320

REACTIONS (6)
  - ABORTION THREATENED [None]
  - HYSTERECTOMY [None]
  - PLACENTA ACCRETA [None]
  - UTERINE DILATION AND CURETTAGE [None]
  - UTERINE HAEMORRHAGE [None]
  - UTERINE RUPTURE [None]
